FAERS Safety Report 5158550-9 (Version None)
Quarter: 2006Q4

REPORT INFORMATION
  Report Type: 
  Country: None (occurrence: None)
  Receive Date: 20061128
  Receipt Date: 20061114
  Transmission Date: 20070319
  Serious: Yes (Hospitalization)
  Sender: FDA-Public Use
  Company Number: US-AMGEN-US200251

PATIENT
  Age: 57 Year
  Sex: Male

DRUGS (8)
  1. EPOGEN [Suspect]
     Indication: DIALYSIS
     Route: 042
     Dates: start: 20060124
  2. ELAVIL [Concomitant]
  3. LIPITOR [Concomitant]
  4. LISINOPRIL [Concomitant]
  5. XANAX [Concomitant]
  6. COREG [Concomitant]
  7. ASPIRIN [Concomitant]
  8. INSULIN [Concomitant]

REACTIONS (5)
  - ANOREXIA [None]
  - CACHEXIA [None]
  - CHEST PAIN [None]
  - FEELING ABNORMAL [None]
  - THERAPEUTIC RESPONSE DECREASED [None]
